FAERS Safety Report 25026227 (Version 1)
Quarter: 2025Q1

REPORT INFORMATION
  Report Type: Spontaneous
  Country: DE (occurrence: DE)
  Receive Date: 20250301
  Receipt Date: 20250301
  Transmission Date: 20250408
  Serious: Yes (Death, Hospitalization, Other)
  Sender: AUROBINDO
  Company Number: DE-GERMAN-DEU/2025/02/002080

PATIENT
  Age: 66 Year
  Sex: Male

DRUGS (16)
  1. DOXORUBICIN [Suspect]
     Active Substance: DOXORUBICIN
     Indication: Angioimmunoblastic T-cell lymphoma
     Route: 065
  2. BENDAMUSTINE [Suspect]
     Active Substance: BENDAMUSTINE
     Indication: Angioimmunoblastic T-cell lymphoma
     Route: 042
  3. CYCLOPHOSPHAMIDE [Suspect]
     Active Substance: CYCLOPHOSPHAMIDE
     Indication: Angioimmunoblastic T-cell lymphoma
     Route: 065
  4. VINCRISTINE [Suspect]
     Active Substance: VINCRISTINE
     Indication: Angioimmunoblastic T-cell lymphoma
     Route: 065
  5. EPIRUBICIN [Suspect]
     Active Substance: EPIRUBICIN
     Indication: Angioimmunoblastic T-cell lymphoma
     Route: 065
  6. PREDNISONE [Suspect]
     Active Substance: PREDNISONE
     Indication: Angioimmunoblastic T-cell lymphoma
     Route: 065
  7. APIXABAN [Concomitant]
     Active Substance: APIXABAN
     Indication: Atrial fibrillation
     Route: 065
  8. BISOPROLOL [Concomitant]
     Active Substance: BISOPROLOL
     Indication: Product used for unknown indication
     Route: 065
  9. RAMIPRIL [Concomitant]
     Active Substance: RAMIPRIL
     Indication: Product used for unknown indication
     Route: 065
  10. TORSEMIDE [Concomitant]
     Active Substance: TORSEMIDE
     Indication: Product used for unknown indication
     Route: 065
  11. PANTOPRAZOLE [Concomitant]
     Active Substance: PANTOPRAZOLE
     Indication: Product used for unknown indication
     Route: 065
  12. FOLIC ACID [Concomitant]
     Active Substance: FOLIC ACID
     Indication: Product used for unknown indication
     Route: 065
  13. ACYCLOVIR [Concomitant]
     Active Substance: ACYCLOVIR
     Indication: Herpes simplex
     Route: 065
  14. MITOMYCIN [Concomitant]
     Active Substance: MITOMYCIN
     Indication: Bladder cancer
     Route: 065
  15. METHYLPREDNISOLONE [Concomitant]
     Active Substance: METHYLPREDNISOLONE
     Indication: Paraneoplastic syndrome
     Route: 065
  16. Immunoglobulin [Concomitant]
     Indication: Paraneoplastic syndrome
     Route: 042

REACTIONS (3)
  - Death [Fatal]
  - Respiratory depression [Unknown]
  - Polyneuropathy [Unknown]
